FAERS Safety Report 18523549 (Version 1)
Quarter: 2020Q4

REPORT INFORMATION
  Report Type: Spontaneous
  Country: US (occurrence: US)
  Receive Date: 20201119
  Receipt Date: 20201119
  Transmission Date: 20210114
  Serious: Yes (Other)
  Sender: FDA-Public Use
  Company Number: US-PURDUE-USA-2020-0166019

PATIENT
  Sex: Male

DRUGS (19)
  1. OXYCODONE HYDROCHLORIDE (SIMILAR TO NDA 22-272) [Suspect]
     Active Substance: OXYCODONE HYDROCHLORIDE
     Indication: PRODUCT USED FOR UNKNOWN INDICATION
     Dosage: UNK
     Route: 048
  2. OXYCODONE HCL CR TABLETS (SIMILAR TO NDA 22-272) [Suspect]
     Active Substance: OXYCODONE HYDROCHLORIDE
     Indication: ARTHRALGIA
     Dosage: UNK
     Route: 048
  3. HYDROMORPHONE TABLET (RHODES) [Suspect]
     Active Substance: HYDROMORPHONE
     Indication: ARTHRALGIA
     Dosage: UNK
     Route: 048
  4. OXYFAST [Suspect]
     Active Substance: OXYCODONE
     Indication: ARTHRALGIA
     Dosage: UNK
     Route: 065
  5. OXYCODONE/ ACETAMINOPHEN TABLETS [Suspect]
     Active Substance: ACETAMINOPHEN\OXYCODONE HYDROCHLORIDE
     Indication: ARTHRALGIA
     Dosage: UNK
     Route: 048
  6. DILAUDID [Suspect]
     Active Substance: HYDROMORPHONE HYDROCHLORIDE
     Indication: ARTHRALGIA
     Dosage: UNK
     Route: 048
  7. OXYCONTIN [Suspect]
     Active Substance: OXYCODONE HYDROCHLORIDE
     Indication: ARTHRALGIA
     Dosage: UNK
     Route: 048
  8. HYDROMORPHONE HCL ORAL SOLUTION (RHODES) [Suspect]
     Active Substance: HYDROMORPHONE HYDROCHLORIDE
     Indication: ARTHRALGIA
     Dosage: UNK
     Route: 048
  9. MS CONTIN [Suspect]
     Active Substance: MORPHINE SULFATE
     Indication: ARTHRALGIA
     Dosage: UNK
     Route: 048
  10. HYDROCODONE BITARTRATE AND ACETAMINOPHEN [Suspect]
     Active Substance: ACETAMINOPHEN\HYDROCODONE BITARTRATE
     Dosage: 5-325 MG, QID
     Route: 048
  11. TRAMADOL. [Suspect]
     Active Substance: TRAMADOL
     Indication: ARTHRALGIA
     Dosage: 501 MG, UNK
     Route: 065
  12. HYDROMORPHONE HCL (SIMILAR TO 19-892) [Suspect]
     Active Substance: HYDROMORPHONE HYDROCHLORIDE
     Indication: PRODUCT USED FOR UNKNOWN INDICATION
     Dosage: UNK
     Route: 048
  13. HYDROCODONE BITARTRATE AND ACETAMINOPHEN [Suspect]
     Active Substance: ACETAMINOPHEN\HYDROCODONE BITARTRATE
     Indication: ARTHRALGIA
     Dosage: 7.5-325 MG, BID
     Route: 048
  14. HYDROCODONE BITARTRATE (SIMILAR TO NDA 206627) [Suspect]
     Active Substance: HYDROCODONE BITARTRATE
     Indication: PRODUCT USED FOR UNKNOWN INDICATION
     Dosage: UNK
     Route: 048
  15. OXYIR [Suspect]
     Active Substance: OXYCODONE HYDROCHLORIDE
     Indication: ARTHRALGIA
     Dosage: UNK
     Route: 065
  16. PALLADONE [Suspect]
     Active Substance: HYDROMORPHONE HYDROCHLORIDE
     Indication: ARTHRALGIA
     Dosage: UNK
     Route: 065
  17. RYZOLT [Suspect]
     Active Substance: TRAMADOL HYDROCHLORIDE
     Indication: ARTHRALGIA
     Dosage: UNK
     Route: 065
  18. OXYCODONE HCL TABLETS (RHODES 91-490) [Suspect]
     Active Substance: OXYCODONE HYDROCHLORIDE
     Indication: ARTHRALGIA
     Dosage: UNK
     Route: 048
  19. MORPHINE SULFATE EXTENDED-RELEASE TABLETS (RHODES 74-769, 74-862) [Suspect]
     Active Substance: MORPHINE SULFATE
     Indication: ARTHRALGIA
     Dosage: UNK
     Route: 048

REACTIONS (4)
  - Drug dependence [Unknown]
  - Overdose [Unknown]
  - Suicidal ideation [Unknown]
  - Depression [Unknown]
